FAERS Safety Report 7525139-3 (Version None)
Quarter: 2011Q2

REPORT INFORMATION
  Report Type: 
  Country: None (occurrence: None)
  Receive Date: 20110526
  Receipt Date: 20110517
  Transmission Date: 20111010
  Serious: Yes (Death, Hospitalization, Other)
  Sender: FDA-Public Use
  Company Number: 2010AC000449

PATIENT
  Age: 56 Year
  Sex: Female

DRUGS (16)
  1. LISINOPRIL [Concomitant]
  2. INSULIN [Concomitant]
  3. COREG [Concomitant]
  4. SIMVASTATIN [Concomitant]
  5. GABAPENTIN [Concomitant]
  6. PROCARDIA [Concomitant]
  7. DIGOXIN [Suspect]
     Indication: CARDIAC DISORDER
     Dosage: 0.125 MG, QD, PO
     Route: 048
     Dates: start: 20030401, end: 20080801
  8. FUROSEMIDE [Concomitant]
  9. DIOVAN [Concomitant]
  10. NEXIUM [Concomitant]
  11. ASPIRIN [Concomitant]
  12. KAYEXALATE [Concomitant]
  13. CLONIDINE [Concomitant]
  14. METOPROLOL [Concomitant]
  15. NOREL SR [Concomitant]
  16. SPIRONOLACTONE [Concomitant]

REACTIONS (30)
  - ISCHAEMIC CARDIOMYOPATHY [None]
  - PAIN [None]
  - ECONOMIC PROBLEM [None]
  - UNEVALUABLE EVENT [None]
  - CHEST DISCOMFORT [None]
  - ASTHENIA [None]
  - LEFT VENTRICULAR HYPERTROPHY [None]
  - HYPERKALAEMIA [None]
  - CORONARY ARTERY DISEASE [None]
  - ANXIETY [None]
  - SOCIAL PROBLEM [None]
  - PARAESTHESIA [None]
  - CARDIOACTIVE DRUG LEVEL INCREASED [None]
  - INJURY [None]
  - CARDIAC FAILURE [None]
  - CARDIOACTIVE DRUG LEVEL BELOW THERAPEUTIC [None]
  - FAMILY STRESS [None]
  - NAUSEA [None]
  - HYPOTENSION [None]
  - HYPOXIC-ISCHAEMIC ENCEPHALOPATHY [None]
  - MENTAL DISORDER [None]
  - ARTERIOSCLEROSIS [None]
  - CONJUNCTIVITIS [None]
  - ANGINA UNSTABLE [None]
  - PULMONARY OEDEMA [None]
  - TOXICITY TO VARIOUS AGENTS [None]
  - SINUS BRADYCARDIA [None]
  - CARDIAC FAILURE CONGESTIVE [None]
  - RENAL FAILURE [None]
  - HEART RATE IRREGULAR [None]
